FAERS Safety Report 8157489-4 (Version None)
Quarter: 2012Q1

REPORT INFORMATION
  Report Type: 
  Country: None (occurrence: None)
  Receive Date: 20120222
  Receipt Date: 20120213
  Transmission Date: 20120608
  Serious: Yes (Hospitalization)
  Sender: FDA-Public Use
  Company Number: BR-ASTRAZENECA-2011SE58024

PATIENT
  Age: 79 Year
  Sex: Female
  Weight: 79 kg

DRUGS (5)
  1. CITALOPRAM HYDROBROMIDE [Concomitant]
     Indication: DEPRESSION
     Route: 048
     Dates: start: 20090101
  2. ANAFRANIL [Concomitant]
     Indication: DEPRESSION
  3. ATACAND HCT [Suspect]
     Indication: HYPERTENSION
     Route: 048
     Dates: start: 20110901, end: 20110901
  4. OMEPRAZOLE [Suspect]
     Indication: HIATUS HERNIA
     Route: 048
  5. ATACAND HCT [Suspect]
     Indication: HYPERTENSION
     Dosage: 16/12.5 MG ONCE DAILY
     Route: 048
     Dates: start: 20040101

REACTIONS (4)
  - CEREBROVASCULAR ACCIDENT [None]
  - THROMBOSIS [None]
  - DEPRESSION [None]
  - CIRCUMSTANCE OR INFORMATION CAPABLE OF LEADING TO MEDICATION ERROR [None]
